FAERS Safety Report 20556476 (Version 2)
Quarter: 2023Q2

REPORT INFORMATION
  Report Type: Spontaneous
  Country: CZ (occurrence: CZ)
  Receive Date: 20220307
  Receipt Date: 20230617
  Transmission Date: 20230722
  Serious: Yes (Other)
  Sender: FDA-Public Use
  Company Number: CZ-NOVARTISPH-NVSC2022CZ048578

PATIENT
  Age: 51 Year
  Sex: Female
  Weight: 50 kg

DRUGS (8)
  1. OXALIPLATIN [Suspect]
     Active Substance: OXALIPLATIN
     Indication: Adenocarcinoma of colon
     Dosage: UNK
     Route: 065
     Dates: start: 202002
  2. OXALIPLATIN [Suspect]
     Active Substance: OXALIPLATIN
     Indication: Colorectal cancer metastatic
  3. FLUOROURACIL [Suspect]
     Active Substance: FLUOROURACIL
     Indication: Adenocarcinoma of colon
     Dosage: UNK
     Route: 065
     Dates: start: 202002
  4. FLUOROURACIL [Suspect]
     Active Substance: FLUOROURACIL
     Indication: Colorectal cancer metastatic
  5. ERBITUX [Suspect]
     Active Substance: CETUXIMAB
     Indication: Adenocarcinoma of colon
     Dosage: UNK
     Route: 065
     Dates: start: 2020
  6. ERBITUX [Suspect]
     Active Substance: CETUXIMAB
     Indication: Colorectal cancer metastatic
     Dosage: UNK
     Route: 065
     Dates: start: 20200226, end: 20210630
  7. LEUCOVORIN [Suspect]
     Active Substance: LEUCOVORIN
     Indication: Adenocarcinoma of colon
     Dosage: UNK
     Route: 065
     Dates: start: 202002
  8. LEUCOVORIN [Suspect]
     Active Substance: LEUCOVORIN
     Indication: Colorectal cancer metastatic

REACTIONS (3)
  - Haematotoxicity [Unknown]
  - Neurotoxicity [Unknown]
  - Palmar-plantar erythrodysaesthesia syndrome [Unknown]

NARRATIVE: CASE EVENT DATE: 20200101
